FAERS Safety Report 7606435-8 (Version None)
Quarter: 2011Q3

REPORT INFORMATION
  Report Type: 
  Country: None (occurrence: None)
  Receive Date: 20110713
  Receipt Date: 20110707
  Transmission Date: 20111222
  Serious: Yes (Other)
  Sender: FDA-Public Use
  Company Number: JP-BAYER-2011-060007

PATIENT
  Age: 47 Year
  Sex: Male

DRUGS (2)
  1. NEXAVAR [Suspect]
     Indication: ANGIOSARCOMA
     Dosage: 200 MG, BID
     Route: 048
     Dates: start: 20110517, end: 20110620
  2. NEXAVAR [Suspect]
     Indication: HEPATIC NEOPLASM MALIGNANT

REACTIONS (2)
  - HEPATIC FUNCTION ABNORMAL [None]
  - ASCITES [None]
